FAERS Safety Report 7885139-0 (Version None)
Quarter: 2011Q4

REPORT INFORMATION
  Report Type: 
  Country: None (occurrence: None)
  Receive Date: 20111102
  Receipt Date: 20111013
  Transmission Date: 20120403
  Serious: No
  Sender: FDA-Public Use
  Company Number: US-ROXANE LABORATORIES, INC.-2011-RO-01148RO

PATIENT
  Sex: Female
  Weight: 113 kg

DRUGS (3)
  1. EXEMESTANE [Suspect]
     Indication: BREAST CANCER
     Dosage: 25 MG
     Route: 048
     Dates: start: 20110720, end: 20110901
  2. ZOMETA [Concomitant]
  3. MULTIVITAMIN WITH VIT C AND D [Concomitant]

REACTIONS (3)
  - PAIN IN EXTREMITY [None]
  - BURNING SENSATION [None]
  - JOINT STIFFNESS [None]
